FAERS Safety Report 8421516-7 (Version None)
Quarter: 2012Q2

REPORT INFORMATION
  Report Type: 
  Country: None (occurrence: None)
  Receive Date: 20120608
  Receipt Date: 20120530
  Transmission Date: 20120825
  Serious: Yes (Death, Hospitalization, Other)
  Sender: FDA-Public Use
  Company Number: JP-JNJFOC-20050902172

PATIENT
  Sex: Male
  Weight: 62 kg

DRUGS (9)
  1. RHEUMATREX [Suspect]
     Indication: RHEUMATOID ARTHRITIS
     Route: 048
     Dates: start: 20050606
  2. LANSOPRAZOLE [Concomitant]
     Indication: GASTRITIS
     Route: 048
  3. REMICADE [Suspect]
     Indication: RHEUMATOID ARTHRITIS
     Route: 042
     Dates: start: 20050621
  4. RHEUMATREX [Suspect]
     Dosage: NO IMPROVEMENT BY DISCONTINUATION
     Route: 048
     Dates: start: 20040303, end: 20050501
  5. REMICADE [Suspect]
     Route: 042
     Dates: start: 20050607
  6. NATEGLINIDE [Concomitant]
     Indication: DIABETES MELLITUS
     Route: 048
  7. INDOMETHACIN [Concomitant]
     Indication: RHEUMATOID ARTHRITIS
     Route: 048
  8. REMICADE [Suspect]
     Route: 042
     Dates: start: 20050720
  9. PREDNISOLONE [Concomitant]
     Indication: RHEUMATOID ARTHRITIS
     Route: 048

REACTIONS (5)
  - HYPERKALAEMIA [None]
  - PNEUMONIA [None]
  - PNEUMOCYSTIS JIROVECI PNEUMONIA [None]
  - STAPHYLOCOCCAL INFECTION [None]
  - ACUTE RESPIRATORY FAILURE [None]
